FAERS Safety Report 9362064 (Version 3)
Quarter: 2013Q4

REPORT INFORMATION
  Report Type: Spontaneous
  Country: IT (occurrence: IT)
  Receive Date: 20130621
  Receipt Date: 20131129
  Transmission Date: 20140711
  Serious: Yes (Other)
  Sender: FDA-Public Use
  Company Number: IT-009507513-1306ITA009741

PATIENT
  Age: 3 Year
  Sex: Male

DRUGS (1)
  1. SINGULAIR [Suspect]
     Indication: RESPIRATORY TRACT INFLAMMATION
     Dosage: 4 MG, DAILY
     Route: 048
     Dates: start: 20130223, end: 20130224

REACTIONS (3)
  - Tachycardia [Recovering/Resolving]
  - Tremor [Recovering/Resolving]
  - Body temperature increased [Recovering/Resolving]
